FAERS Safety Report 4785675-X (Version None)
Quarter: 2005Q3

REPORT INFORMATION
  Report Type: 
  Country: None (occurrence: None)
  Receive Date: 20050930
  Receipt Date: 20050930
  Transmission Date: 20060218
  Serious: No
  Sender: FDA-Public Use
  Company Number: None

PATIENT
  Age: 24 Year
  Sex: Female
  Weight: 104.3273 kg

DRUGS (1)
  1. BUPROPION [Suspect]

REACTIONS (9)
  - ANGIONEUROTIC OEDEMA [None]
  - DYSPNOEA [None]
  - HYPERSENSITIVITY [None]
  - OEDEMA PERIPHERAL [None]
  - PERIORBITAL OEDEMA [None]
  - RASH [None]
  - SWELLING FACE [None]
  - SWOLLEN TONGUE [None]
  - URTICARIA [None]
